FAERS Safety Report 4494955-7 (Version None)
Quarter: 2004Q4

REPORT INFORMATION
  Report Type: 
  Country: None (occurrence: None)
  Receive Date: 20041105
  Receipt Date: 20041105
  Transmission Date: 20050328
  Serious: Yes (Hospitalization)
  Sender: FDA-Public Use
  Company Number: None

PATIENT
  Sex: Female
  Weight: 115 kg

DRUGS (2)
  1. DIGOXIN [Suspect]
     Indication: ATRIAL FIBRILLATION
     Dosage: 0.25MG    QT,TH, SAT,SU    ORAL
     Route: 048
     Dates: start: 20040801, end: 20041102
  2. DIGOXIN [Suspect]
     Indication: ATRIAL FIBRILLATION
     Dosage: 0.375MG   Q M-W-F     ORAL
     Route: 048
     Dates: start: 20040801, end: 20041101

REACTIONS (3)
  - CARDIAC DISORDER [None]
  - LARGE INTESTINE PERFORATION [None]
  - URINE ANALYSIS ABNORMAL [None]
